FAERS Safety Report 5455752-9 (Version None)
Quarter: 2007Q3

REPORT INFORMATION
  Report Type: 
  Country: None (occurrence: None)
  Receive Date: 20070913
  Receipt Date: 20070913
  Transmission Date: 20080115
  Serious: Yes (Other)
  Sender: FDA-Public Use
  Company Number: None

PATIENT
  Age: 10 Year
  Sex: Female
  Weight: 34 kg

DRUGS (19)
  1. CLOLAR [Suspect]
     Indication: ACUTE LYMPHOCYTIC LEUKAEMIA
     Dosage: 57MG/DAILY/IV
     Route: 042
     Dates: start: 20070801, end: 20070804
  2. CLOLAR [Suspect]
     Indication: DISEASE RECURRENCE
     Dosage: 57MG/DAILY/IV
     Route: 042
     Dates: start: 20070801, end: 20070804
  3. HYDROCORTISONE [Concomitant]
  4. ONDANSETRON [Concomitant]
  5. VORICONAZOLE [Concomitant]
  6. ALLOPURINOL [Concomitant]
  7. ACYCLOVIR [Concomitant]
  8. BACTRIM [Concomitant]
  9. CETIRIZINE HCL [Concomitant]
  10. HYDRALAZINE HCL [Concomitant]
  11. CEFEPIME [Concomitant]
  12. MAGNESIUM OXIDE [Concomitant]
  13. ELITEK [Concomitant]
  14. FUROSEMIDE [Concomitant]
  15. IV FLUIDS W/ NAHCO3 [Concomitant]
  16. ALBUMIN (HUMAN) [Concomitant]
  17. EPINEPHRINE DRIP [Concomitant]
  18. VANCOMYCIN [Concomitant]
  19. CASPOFUNGIN [Concomitant]

REACTIONS (3)
  - EJECTION FRACTION DECREASED [None]
  - GALLOP RHYTHM PRESENT [None]
  - VENTRICULAR DYSFUNCTION [None]
